FAERS Safety Report 21128630 (Version 2)
Quarter: 2022Q3

REPORT INFORMATION
  Report Type: Spontaneous
  Country: IT (occurrence: None)
  Receive Date: 20220725
  Receipt Date: 20220809
  Transmission Date: 20221026
  Serious: Yes (Other)
  Sender: FDA-Public Use
  Company Number: IT-ROCHE-3140583

PATIENT
  Age: 52 Year
  Sex: Female

DRUGS (1)
  1. OCREVUS [Suspect]
     Active Substance: OCRELIZUMAB
     Indication: Multiple sclerosis
     Dosage: 16 FEBRUARY (DATE OF LAST TREATMENT BEFORE THE EVENTS);
     Route: 042
     Dates: start: 20220202

REACTIONS (2)
  - Drug ineffective [Unknown]
  - Central nervous system lesion [Not Recovered/Not Resolved]

NARRATIVE: CASE EVENT DATE: 20220530
